FAERS Safety Report 8315229-X (Version None)
Quarter: 2012Q2

REPORT INFORMATION
  Report Type: 
  Country: None (occurrence: None)
  Receive Date: 20120426
  Receipt Date: 20120416
  Transmission Date: 20120825
  Serious: Yes (Hospitalization)
  Sender: FDA-Public Use
  Company Number: ES-CELGENEUS-144-50794-12022833

PATIENT
  Sex: Male
  Weight: 101 kg

DRUGS (7)
  1. TORSEMIDE [Concomitant]
     Indication: VENOUS INSUFFICIENCY
     Dosage: 1 TABLET
     Route: 065
  2. VIDAZA [Suspect]
     Dosage: 150 MILLIGRAM
     Route: 058
     Dates: start: 20070917, end: 20070921
  3. ASPIRIN [Concomitant]
     Dosage: 1 TABLET
     Route: 065
  4. VIDAZA [Suspect]
     Dosage: 150 MILLIGRAM
     Route: 058
     Dates: start: 20071029, end: 20071102
  5. VORICONAZOLE [Concomitant]
     Indication: ANTIFUNGAL PROPHYLAXIS
     Dosage: 200 MILLIGRAM
     Route: 065
  6. ATORVASTATIN CALCIUM [Concomitant]
     Dosage: 1 TABLET
     Route: 065
  7. PERMIXON [Concomitant]
     Dosage: 1 TABLET
     Route: 065

REACTIONS (3)
  - ESCHERICHIA BACTERAEMIA [None]
  - STAPHYLOCOCCAL BACTERAEMIA [None]
  - BRONCHOPULMONARY ASPERGILLOSIS [None]
